FAERS Safety Report 7873911-2 (Version None)
Quarter: 2011Q4

REPORT INFORMATION
  Report Type: 
  Country: None (occurrence: None)
  Receive Date: 20111017
  Receipt Date: 20110210
  Transmission Date: 20120403
  Serious: Yes (Other)
  Sender: FDA-Public Use
  Company Number: 2011S1000118

PATIENT
  Sex: Female

DRUGS (4)
  1. NITROGLYCERIN [Concomitant]
  2. REMEX [Concomitant]
  3. PLAVIX [Concomitant]
  4. DARVOCET-N 100 [Suspect]
     Indication: BACK PAIN
     Dosage: (AS REQUIRED),ORAL
     Route: 048
     Dates: start: 20050101, end: 20101201

REACTIONS (4)
  - MYOCARDIAL INFARCTION [None]
  - DRUG ABUSE [None]
  - DYSPNOEA [None]
  - CHEST PAIN [None]
